FAERS Safety Report 8405702-8 (Version None)
Quarter: 2012Q2

REPORT INFORMATION
  Report Type: 
  Country: None (occurrence: None)
  Receive Date: 20120604
  Receipt Date: 20120522
  Transmission Date: 20120825
  Serious: Yes (Hospitalization)
  Sender: FDA-Public Use
  Company Number: BR-PAR PHARMACEUTICAL, INC-2012SCPR004396

PATIENT

DRUGS (1)
  1. CIPROFLOXACIN EXTENDED RELEASE [Suspect]
     Indication: CYSTITIS
     Dosage: 500 MG, BID
     Route: 048

REACTIONS (2)
  - OESOPHAGEAL INJURY [None]
  - HAEMOGLOBIN DECREASED [None]
